FAERS Safety Report 19259656 (Version 2)
Quarter: 2021Q2

REPORT INFORMATION
  Report Type: Spontaneous
  Country: GB (occurrence: GB)
  Receive Date: 20210514
  Receipt Date: 20210604
  Transmission Date: 20210717
  Serious: Yes (Other)
  Sender: FDA-Public Use
  Company Number: GB-PERRIGO-21GB005896

PATIENT

DRUGS (4)
  1. IBUPROFEN. [Suspect]
     Active Substance: IBUPROFEN
     Indication: PAIN
  2. PARACETAMOL [Concomitant]
     Active Substance: ACETAMINOPHEN
     Indication: NECK PAIN
     Dosage: UNK UNK, Q4H
     Route: 065
  3. VACCINES [Suspect]
     Active Substance: UNSPECIFIED INGREDIENT
     Indication: IMMUNISATION
     Dosage: DOSE 1
     Dates: start: 20210501
  4. IBUPROFEN. [Suspect]
     Active Substance: IBUPROFEN
     Indication: CARDIAC FAILURE
     Dosage: UNK
     Route: 065

REACTIONS (5)
  - Pyrexia [Recovered/Resolved with Sequelae]
  - Headache [Recovering/Resolving]
  - Off label use [Unknown]
  - Fatigue [Not Recovered/Not Resolved]
  - Lymphadenopathy [Not Recovered/Not Resolved]

NARRATIVE: CASE EVENT DATE: 20210501
